FAERS Safety Report 23741461 (Version 2)
Quarter: 2024Q2

REPORT INFORMATION
  Report Type: Spontaneous
  Country: US (occurrence: US)
  Receive Date: 20240415
  Receipt Date: 20240510
  Transmission Date: 20240716
  Serious: Yes (Hospitalization)
  Sender: FDA-Public Use
  Company Number: US-BSC-2024000033

PATIENT
  Age: 70 Year
  Sex: Female

DRUGS (12)
  1. VARITHENA [Suspect]
     Active Substance: POLIDOCANOL
     Indication: Peripheral venous disease
     Dosage: SERIALIZATION NUMBER?44095101860
     Dates: start: 20201103
  2. VARITHENA [Suspect]
     Active Substance: POLIDOCANOL
     Indication: Peripheral venous disease
     Dosage: SERIALIZATION NUMBER?44095101860
     Dates: start: 20201117
  3. VARITHENA [Suspect]
     Active Substance: POLIDOCANOL
     Indication: Peripheral venous disease
     Dosage: SERIALIZATION NUMBER?44095101860
     Dates: start: 20201201
  4. VARITHENA [Suspect]
     Active Substance: POLIDOCANOL
     Indication: Peripheral venous disease
     Dosage: SERIALIZATION NUMBER?44095101860
     Dates: start: 20201210
  5. VARITHENA [Suspect]
     Active Substance: POLIDOCANOL
     Indication: Peripheral venous disease
     Dosage: SERIALIZATION NUMBER?47832163937027
     Dates: start: 20240125
  6. VARITHENA [Suspect]
     Active Substance: POLIDOCANOL
     Indication: Peripheral venous disease
     Dosage: SERIALIZATION NUMBER?47832163937027
     Dates: start: 20240201
  7. VARITHENA [Suspect]
     Active Substance: POLIDOCANOL
     Indication: Peripheral venous disease
     Dosage: SERIALIZATION NUMBER?47832163937027
     Dates: start: 20240212
  8. VARITHENA [Suspect]
     Active Substance: POLIDOCANOL
     Indication: Peripheral venous disease
     Dosage: SERIALIZATION NUMBER?94738134243750
     Dates: start: 20240214
  9. VARITHENA [Suspect]
     Active Substance: POLIDOCANOL
     Indication: Peripheral venous disease
     Dosage: SERIALIZATION NUMBER?76143340366543
     Dates: start: 20240404
  10. VASCEPA [Concomitant]
     Active Substance: ICOSAPENT ETHYL
     Indication: Blood cholesterol
     Dates: start: 20200401
  11. NIACIN [Concomitant]
     Active Substance: NIACIN
     Indication: Blood cholesterol
     Dates: start: 20170401
  12. SIMVASTATIN [Concomitant]
     Active Substance: SIMVASTATIN
     Indication: Blood cholesterol
     Dosage: FOR 21 DAYS
     Dates: start: 20200401

REACTIONS (5)
  - Myocardial infarction [Recovering/Resolving]
  - Chest discomfort [Recovering/Resolving]
  - Hypoaesthesia [Recovering/Resolving]
  - Enzyme level increased [Unknown]
  - Pain in extremity [Unknown]

NARRATIVE: CASE EVENT DATE: 20240404
